FAERS Safety Report 13688548 (Version 2)
Quarter: 2017Q3

REPORT INFORMATION
  Report Type: Report from Study
  Country: FR (occurrence: FR)
  Receive Date: 20170626
  Receipt Date: 20170707
  Transmission Date: 20171127
  Serious: Yes (Death)
  Sender: FDA-Public Use
  Company Number: FR-ROCHE-1952992

PATIENT
  Age: 85 Year
  Sex: Female
  Weight: 42 kg

DRUGS (10)
  1. SPIROCTAN [Concomitant]
     Active Substance: SPIRONOLACTONE
     Indication: HYPERTENSION
     Route: 048
     Dates: start: 20140112
  2. LERCANIDIPINE [Concomitant]
     Active Substance: LERCANIDIPINE
     Indication: HYPERTENSION
     Route: 048
     Dates: start: 201401
  3. COBIMETINIB. [Suspect]
     Active Substance: COBIMETINIB
     Indication: METASTATIC MALIGNANT MELANOMA
     Dosage: CYCLE 1 DATE OF LAST DOSE (60 MG) ADMINISTRATION PRIOR TO SAE ONSET ON 15/JUN/2017?CUMULATIVE DOSE 1
     Route: 048
     Dates: start: 20170523, end: 20170530
  4. VEMURAFENIB. [Suspect]
     Active Substance: VEMURAFENIB
     Indication: METASTATIC MALIGNANT MELANOMA
     Dosage: CYCLE 1 DATE OF LAST DOSE (960 MG) ADMINISTRATION PRIOR TO SAE ONSET ON 15/JUN/2017?CUMULATIVE DOSE
     Route: 048
     Dates: start: 20170523, end: 20170530
  5. VEMURAFENIB. [Suspect]
     Active Substance: VEMURAFENIB
     Route: 048
     Dates: start: 20170606, end: 20170615
  6. LIPANTHYL [Concomitant]
     Active Substance: FENOFIBRATE
     Indication: HYPERCHOLESTEROLAEMIA
     Dosage: DOSE:145 (UNIT NOT REPORTED)
     Route: 048
     Dates: start: 201401
  7. TEMESTA (FRANCE) [Concomitant]
     Active Substance: LORAZEPAM
     Indication: INSOMNIA
     Dosage: 0.5 TO 1 TABLET IN THE EVENING AS NEEDED
     Route: 048
     Dates: start: 201401
  8. VEMURAFENIB. [Suspect]
     Active Substance: VEMURAFENIB
     Route: 048
     Dates: start: 20170601, end: 20170605
  9. COBIMETINIB. [Suspect]
     Active Substance: COBIMETINIB
     Route: 048
     Dates: start: 20170601, end: 20170615
  10. ZYMAD [Concomitant]
     Active Substance: CHOLECALCIFEROL
     Dosage: DOSE:1 AMPOULE
     Route: 065

REACTIONS (2)
  - Peritonitis [Fatal]
  - Pneumoperitoneum [Fatal]

NARRATIVE: CASE EVENT DATE: 20170617
